FAERS Safety Report 9844537 (Version 2)
Quarter: 2014Q1

REPORT INFORMATION
  Report Type: Spontaneous
  Country: HU (occurrence: None)
  Receive Date: 20140122
  Receipt Date: 20140204
  Transmission Date: 20141002
  Serious: Yes (Other)
  Sender: FDA-Public Use
  Company Number: VAL_02908_2014

PATIENT
  Sex: Male
  Weight: 78 kg

DRUGS (3)
  1. METOPROLOL [Suspect]
     Indication: HYPERTENSION
     Dosage: (DF)
  2. ENALAPRIL HCT [Suspect]
     Indication: HYPERTENSION
     Dosage: (DF REGIMEN #1))
  3. VALSARTAN (VALSARTAN) [Suspect]
     Indication: HYPERTENSION
     Dosage: (DF REGIMEN #1)))

REACTIONS (6)
  - Blood pressure increased [None]
  - Blood urea increased [None]
  - Blood cholesterol increased [None]
  - Blood triglycerides increased [None]
  - Low density lipoprotein increased [None]
  - Product quality issue [None]
